FAERS Safety Report 6489646-7 (Version None)
Quarter: 2009Q4

REPORT INFORMATION
  Report Type: 
  Country: None (occurrence: None)
  Receive Date: 20091210
  Receipt Date: 20091130
  Transmission Date: 20100525
  Serious: Yes (Hospitalization)
  Sender: FDA-Public Use
  Company Number: IT-GENENTECH-292952

PATIENT
  Sex: Male

DRUGS (3)
  1. BEVACIZUMAB [Suspect]
     Indication: NON-SMALL CELL LUNG CANCER
     Dosage: 667 MG, UNK
     Route: 042
     Dates: start: 20090916, end: 20091020
  2. PEMETREXED [Suspect]
     Indication: NON-SMALL CELL LUNG CANCER
     Dosage: 950 MG, UNK
     Route: 042
     Dates: start: 20090916, end: 20091020
  3. CISPLATIN [Suspect]
     Indication: NON-SMALL CELL LUNG CANCER
     Dosage: 142.5 MG, UNK
     Route: 042
     Dates: start: 20090916, end: 20091020

REACTIONS (3)
  - GASTROINTESTINAL TOXICITY [None]
  - NEUTROPENIA [None]
  - WEIGHT DECREASED [None]
